FAERS Safety Report 10062133 (Version 10)
Quarter: 2015Q4

REPORT INFORMATION
  Report Type: Report from Study
  Country: US (occurrence: US)
  Receive Date: 20140407
  Receipt Date: 20151027
  Transmission Date: 20160304
  Serious: Yes (Other)
  Sender: FDA-Public Use
  Company Number: US-ALEXION-A201401091

PATIENT
  Age: 58 Year
  Sex: Male

DRUGS (25)
  1. LASIX [Concomitant]
     Active Substance: FUROSEMIDE
     Indication: OEDEMA PERIPHERAL
     Dosage: 20 MG, QD
     Route: 065
     Dates: start: 20090216
  2. L-ARGININE                         /00126101/ [Concomitant]
     Active Substance: ARGININE
     Indication: PRODUCT USED FOR UNKNOWN INDICATION
     Dosage: 500, QD
     Route: 065
     Dates: start: 20110829
  3. SOLIRIS [Suspect]
     Active Substance: ECULIZUMAB
     Dosage: 1500 MG, UNK
     Route: 042
     Dates: start: 20140322
  4. SOLIRIS [Suspect]
     Active Substance: ECULIZUMAB
     Dosage: 1200 MG, Q12D
     Route: 042
     Dates: start: 2014
  5. CARVEDILOL. [Concomitant]
     Active Substance: CARVEDILOL
     Indication: PRODUCT USED FOR UNKNOWN INDICATION
     Dosage: 25 MG, QID
     Route: 065
     Dates: start: 20110228
  6. RITALIN [Concomitant]
     Active Substance: METHYLPHENIDATE HYDROCHLORIDE
     Indication: FLANK PAIN
     Dosage: UNK
     Route: 065
     Dates: start: 2014, end: 2014
  7. POTASSIUM [Concomitant]
     Active Substance: POTASSIUM
     Indication: OEDEMA PERIPHERAL
     Dosage: 10 ?G, QD
     Route: 065
     Dates: start: 20090316
  8. AMIODARONE [Concomitant]
     Active Substance: AMIODARONE
     Indication: ATRIAL FIBRILLATION
     Dosage: 200 MG, QD
     Route: 065
     Dates: start: 20131001
  9. SOLIRIS [Suspect]
     Active Substance: ECULIZUMAB
     Dosage: UNK
     Route: 042
  10. SOLIRIS [Suspect]
     Active Substance: ECULIZUMAB
     Dosage: 600 MG, QW
     Route: 042
     Dates: start: 2014, end: 2014
  11. MULTIVITAMIN                       /00097801/ [Concomitant]
     Active Substance: VITAMINS
     Indication: MINERAL SUPPLEMENTATION
     Dosage: UNK, QD
     Route: 065
  12. OXYCODONE [Concomitant]
     Active Substance: OXYCODONE
     Indication: PAIN
     Dosage: 7.5/325MG, PRN
     Route: 065
     Dates: start: 20110228
  13. AVELOX [Concomitant]
     Active Substance: MOXIFLOXACIN HYDROCHLORIDE
     Indication: ANTIBIOTIC THERAPY
     Dosage: UNK, QD
     Route: 065
     Dates: start: 20120114
  14. SOLIRIS [Suspect]
     Active Substance: ECULIZUMAB
     Indication: PAROXYSMAL NOCTURNAL HAEMOGLOBINURIA
     Dosage: 1500 MG, EVERY 12 DAYS
     Route: 042
     Dates: start: 20090318, end: 20140324
  15. FOLIC ACID. [Concomitant]
     Active Substance: FOLIC ACID
     Indication: VITAMIN SUPPLEMENTATION
     Dosage: 1 MG, QD
     Route: 065
     Dates: start: 20110228
  16. TEKTURNA [Concomitant]
     Active Substance: ALISKIREN HEMIFUMARATE
     Indication: PRODUCT USED FOR UNKNOWN INDICATION
     Dosage: 150 MG, QD
     Route: 065
     Dates: start: 20110228
  17. TESTOSTERONE. [Concomitant]
     Active Substance: TESTOSTERONE
     Indication: PRODUCT USED FOR UNKNOWN INDICATION
     Dosage: 200 MG, EVERY THREE MONTHS
     Route: 030
     Dates: start: 20110415
  18. SOLIRIS [Suspect]
     Active Substance: ECULIZUMAB
     Dosage: 1200 Q12 DAYS
     Route: 042
  19. SOLIRIS [Suspect]
     Active Substance: ECULIZUMAB
     Dosage: UNK
     Route: 042
  20. DIOVAN HCT [Concomitant]
     Active Substance: HYDROCHLOROTHIAZIDE\VALSARTAN
     Indication: PRODUCT USED FOR UNKNOWN INDICATION
     Dosage: 320/12.5MG, QD
     Route: 065
     Dates: start: 20090316
  21. RITALIN [Concomitant]
     Active Substance: METHYLPHENIDATE HYDROCHLORIDE
     Indication: HAEMOGLOBINURIA
  22. RITALIN [Concomitant]
     Active Substance: METHYLPHENIDATE HYDROCHLORIDE
     Indication: DEPRESSION
  23. CO Q 10                            /00517201/ [Concomitant]
     Indication: PRODUCT USED FOR UNKNOWN INDICATION
     Dosage: UNK, QD
     Route: 065
     Dates: start: 20120221
  24. SOLIRIS [Suspect]
     Active Substance: ECULIZUMAB
     Dosage: UNK
     Route: 042
  25. RITALIN [Concomitant]
     Active Substance: METHYLPHENIDATE HYDROCHLORIDE
     Indication: FATIGUE
     Dosage: 5 MG, BID
     Route: 065
     Dates: start: 20110909

REACTIONS (19)
  - Skin lesion [Unknown]
  - Lymphadenopathy [Unknown]
  - Infusion related reaction [Unknown]
  - Flank pain [Unknown]
  - Depression [Not Recovered/Not Resolved]
  - Haemoglobinuria [Unknown]
  - Fatigue [Not Recovered/Not Resolved]
  - Hepatic neoplasm [Unknown]
  - Lethargy [Unknown]
  - Oedema [Not Recovered/Not Resolved]
  - Thirst [Unknown]
  - Dyspnoea [Not Recovered/Not Resolved]
  - Pyrexia [Recovered/Resolved]
  - Inappropriate schedule of drug administration [Not Recovered/Not Resolved]
  - Drug ineffective [Unknown]
  - Splenomegaly [Unknown]
  - Abdominal pain [Not Recovered/Not Resolved]
  - Weight increased [Unknown]
  - Abdominal distension [Unknown]

NARRATIVE: CASE EVENT DATE: 2014
